FAERS Safety Report 23467948 (Version 2)
Quarter: 2024Q1

REPORT INFORMATION
  Report Type: Spontaneous
  Country: FR (occurrence: FR)
  Receive Date: 20240201
  Receipt Date: 20240206
  Transmission Date: 20240410
  Serious: Yes (Hospitalization)
  Sender: FDA-Public Use
  Company Number: FR-WOODWARD-2024-FR-000025

PATIENT
  Age: 54 Year
  Sex: Female

DRUGS (14)
  1. RABEPRAZOLE SODIUM [Suspect]
     Active Substance: RABEPRAZOLE SODIUM
     Indication: Gastrooesophageal reflux disease
     Dosage: 10.0 MILLIGRAM(S) (10 MILLIGRAMS(S), 1 IN 1 DAY
     Route: 048
  2. MYFORTIC [Suspect]
     Active Substance: MYCOPHENOLATE SODIUM
     Dosage: 1440 MILLIGRAM(S) (1440 MILLIGRAM(S), 1 IN 1 DAY)
     Route: 048
     Dates: start: 20231116
  3. ATORVASTATIN [Suspect]
     Active Substance: ATORVASTATIN
     Dosage: 40.0 MILLIGRAM(S) (40 MILLIGRAM(S), 1 IN 1 DAY
     Route: 048
  4. LEVETIRACETAM [Suspect]
     Active Substance: LEVETIRACETAM
     Dosage: 500.0 MILLIGRAM(S) (500 MILLIGRAM(S), 1 IN 1 DAY)
     Route: 048
  5. LEUCOVORIN [Concomitant]
     Active Substance: LEUCOVORIN\LEUCOVORIN CALCIUM
     Dosage: UNKNOWN
     Route: 065
  6. CYANOCOBALAMIN\PYRIDOXINE HYDROCHLORIDE\THIAMINE [Concomitant]
     Active Substance: CYANOCOBALAMIN\PYRIDOXINE HYDROCHLORIDE\THIAMINE
     Dosage: UNKNOWN
     Route: 065
  7. ENVARSUS XR [Suspect]
     Active Substance: TACROLIMUS
     Dosage: 5.0 MILLIGRAM(S) (5 MILLIGRAM(S), 1 IN 1 DAY)
     Route: 048
     Dates: start: 20231201
  8. PROGRAF [Suspect]
     Active Substance: TACROLIMUS
     Dosage: 10.0 MILLIGRAM(S) (10 MILLIGRAM(S), 1 IN 1 DAY)
     Route: 048
     Dates: start: 20231116, end: 20231130
  9. PAROXETINE [Suspect]
     Active Substance: PAROXETINE
     Dosage: 20.0 MILLIGRAM(S) (20 MILLIGRAM(S), 1 IN 1 DAY)
     Route: 048
  10. ACETAMINOPHEN [Suspect]
     Active Substance: ACETAMINOPHEN
     Dosage: 3.0 GRAM(S) (3 GRAM(S), 1 IN 1 DAY)
     Route: 048
  11. ARANESP [Suspect]
     Active Substance: DARBEPOETIN ALFA
     Dosage: (80 MICROGRAM(S), IN 15 DAY)
     Route: 058
  12. ATOVAQUONE [Suspect]
     Active Substance: ATOVAQUONE
     Dosage: 10.0 MILLILITRE(S) (10 MILLILITRE(S), 1 IN 1 DAY)
     Route: 048
  13. PREDNISOLONE [Suspect]
     Active Substance: PREDNISOLONE
     Dosage: 10.0 MILLIGRAM(S) (10 MILLIGRAM(S), 1 IN 1 DAY)
     Route: 048
  14. NEBIVOLOL [Suspect]
     Active Substance: NEBIVOLOL
     Dosage: 5.0 MILLIGRAM(S) (5 MILLIGRAM(S), 1 IN 1 DAY)
     Route: 048

REACTIONS (3)
  - Thrombocytopenia [Not Recovered/Not Resolved]
  - Condition aggravated [Not Recovered/Not Resolved]
  - Anaemia [Not Recovered/Not Resolved]

NARRATIVE: CASE EVENT DATE: 20231201
